FAERS Safety Report 18061895 (Version 1)
Quarter: 2020Q3

REPORT INFORMATION
  Report Type: Spontaneous
  Country: US (occurrence: US)
  Receive Date: 20200723
  Receipt Date: 20200723
  Transmission Date: 20201103
  Serious: Yes (Hospitalization)
  Sender: FDA-Public Use
  Company Number: US-FRESENIUS MEDICAL CARE RENAL THERAPIES GROUP-FMC-2007-000791

PATIENT
  Age: 55 Year
  Sex: Male
  Weight: 68 kg

DRUGS (17)
  1. SUCCINATE [Concomitant]
  2. CALCIUM CARBONATE. [Concomitant]
     Active Substance: CALCIUM CARBONATE
  3. RIFAMPIN. [Concomitant]
     Active Substance: RIFAMPIN
  4. SEVELAMER CARBONATE. [Concomitant]
     Active Substance: SEVELAMER CARBONATE
  5. DELFLEX WITH DEXTROSE 2.5% LOW MAGNESIUM LOW CALCIUM [Suspect]
     Active Substance: CALCIUM CHLORIDE\DEXTROSE\MAGNESIUM CHLORIDE\SODIUM CHLORIDE\SODIUM LACTATE
     Indication: END STAGE RENAL DISEASE
     Dosage: FILL VOLUME = 2800 ML, 3 EXCHANGES, LAST FILL = 2000 ML, DAYTIME EXCHANGE = 2000 ML.
     Route: 033
  6. DELFLEX WITH DEXTROSE 1.5% LOW MAGNESIUM LOW CALCIUM [Suspect]
     Active Substance: CALCIUM CHLORIDE\DEXTROSE\MAGNESIUM CHLORIDE\SODIUM CHLORIDE\SODIUM LACTATE
     Indication: END STAGE RENAL DISEASE
     Dosage: FILL VOLUME = 2800 ML, 3 EXCHANGES, LAST FILL = 2000 ML, DAYTIME EXCHANGE = 2000 ML.
     Route: 033
     Dates: start: 20131007
  7. PANTOPRAZOLE [Concomitant]
     Active Substance: PANTOPRAZOLE
  8. ATORVASTATIN [Concomitant]
     Active Substance: ATORVASTATIN
  9. ALLOPURINOL. [Concomitant]
     Active Substance: ALLOPURINOL
  10. AMLODIPINE [Concomitant]
     Active Substance: AMLODIPINE BESYLATE
  11. CALCITRIOL. [Concomitant]
     Active Substance: CALCITRIOL
  12. METOPROLOL. [Concomitant]
     Active Substance: METOPROLOL
  13. DELFLEX WITH DEXTROSE 4.25% LOW MAGNESIUM LOW CALCIUM [Suspect]
     Active Substance: CALCIUM CHLORIDE\DEXTROSE\MAGNESIUM CHLORIDE\SODIUM CHLORIDE\SODIUM LACTATE
     Indication: END STAGE RENAL DISEASE
     Dosage: FILL VOLUME = 2800 ML, 3 EXCHANGES, LAST FILL = 2000 ML, DAYTIME EXCHANGE = 2000 ML.
     Route: 033
  14. CINACALCET HCL [Concomitant]
     Active Substance: CINACALCET HYDROCHLORIDE
  15. SUCROFERRIC OXYHYDROXIDE [Concomitant]
     Active Substance: SUCROFERRIC OXYHYDROXIDE
  16. NEPHROCAP [Concomitant]
  17. VITAMIN D [Concomitant]
     Active Substance: VITAMIN D NOS

REACTIONS (1)
  - Catheter site infection [Recovering/Resolving]
